FAERS Safety Report 23155034 (Version 1)
Quarter: 2023Q4

REPORT INFORMATION
  Report Type: Report from Study
  Country: CA (occurrence: CA)
  Receive Date: 20231107
  Receipt Date: 20231107
  Transmission Date: 20240110
  Serious: Yes (Other)
  Sender: FDA-Public Use
  Company Number: CA-Eisai Medical Research-EC-2023-149268

PATIENT
  Age: 63 Year
  Sex: Female

DRUGS (4)
  1. LENVATINIB [Suspect]
     Active Substance: LENVATINIB
     Indication: Endometrial cancer
     Route: 048
  2. LENVATINIB [Suspect]
     Active Substance: LENVATINIB
     Route: 048
  3. LENVATINIB [Suspect]
     Active Substance: LENVATINIB
     Route: 048
  4. PEMBROLIZUMAB [Suspect]
     Active Substance: PEMBROLIZUMAB
     Indication: Endometrial cancer
     Route: 042

REACTIONS (22)
  - Vulvovaginal discomfort [Unknown]
  - Gastrointestinal motility disorder [Unknown]
  - Anorectal discomfort [Unknown]
  - Somnolence [Unknown]
  - Hyperkeratosis [Unknown]
  - Vascular access complication [Unknown]
  - Nasal dryness [Unknown]
  - Therapeutic response unexpected [Unknown]
  - Product prescribing issue [Unknown]
  - Product use issue [Unknown]
  - Decreased appetite [Unknown]
  - Fatigue [Unknown]
  - Hypertension [Unknown]
  - Musculoskeletal chest pain [Unknown]
  - Pain [Unknown]
  - Pain in extremity [Unknown]
  - Protein urine present [Unknown]
  - Thrombocytopenia [Unknown]
  - Weight decreased [Unknown]
  - Constipation [Unknown]
  - Dry mouth [Unknown]
  - Inappropriate schedule of product administration [Unknown]
